FAERS Safety Report 4855317-3 (Version None)
Quarter: 2005Q4

REPORT INFORMATION
  Report Type: 
  Country: None (occurrence: None)
  Receive Date: 20051214
  Receipt Date: 20051129
  Transmission Date: 20060501
  Serious: Yes (Hospitalization, Other)
  Sender: FDA-Public Use
  Company Number: 2005BI021526

PATIENT
  Age: 50 Year
  Sex: Male
  Weight: 97.5234 kg

DRUGS (10)
  1. AVONEX [Suspect]
     Indication: MULTIPLE SCLEROSIS
     Dosage: 30 UG; QW; IM
     Route: 030
     Dates: start: 20030301
  2. PRIMIDONE [Concomitant]
  3. BETASERON [Concomitant]
  4. CARBAMAZEPINE [Concomitant]
  5. PLAVIX [Concomitant]
  6. BUPROPION HCL [Concomitant]
  7. ADVAIR DISKUS 250/50 [Concomitant]
  8. ALBUTEROL [Concomitant]
  9. ALBUTEROL TABLET [Concomitant]
  10. SPIRBA INHALER [Concomitant]

REACTIONS (6)
  - FALL [None]
  - GASTROENTERITIS VIRAL [None]
  - MUSCLE SPASMS [None]
  - PNEUMONIA [None]
  - WEIGHT DECREASED [None]
  - WEIGHT INCREASED [None]
